FAERS Safety Report 25528316 (Version 1)
Quarter: 2025Q3

REPORT INFORMATION
  Report Type: Spontaneous
  Country: US (occurrence: US)
  Receive Date: 20250708
  Receipt Date: 20250708
  Transmission Date: 20251021
  Serious: Yes (Other)
  Sender: COOPERSURGICAL
  Company Number: US-COOPERSURGICAL, INC.-2025CPS005222

PATIENT
  Sex: Female
  Weight: 63.492 kg

DRUGS (1)
  1. PARAGARD T 380A [Suspect]
     Active Substance: COPPER
     Route: 015
     Dates: start: 20200518, end: 20200608

REACTIONS (7)
  - Ovarian cyst [Unknown]
  - Injury [Unknown]
  - Pelvic inflammatory disease [Unknown]
  - Emotional distress [Unknown]
  - Dyspareunia [Unknown]
  - Abdominal pain [Unknown]
  - Back pain [Unknown]
